FAERS Safety Report 8062382-1 (Version None)
Quarter: 2012Q1

REPORT INFORMATION
  Report Type: 
  Country: None (occurrence: None)
  Receive Date: 20120123
  Receipt Date: 20120117
  Transmission Date: 20120608
  Serious: Yes (Disabling, Other)
  Sender: FDA-Public Use
  Company Number: SK-AMGEN-SVKSP2012000492

PATIENT
  Age: 64 Year
  Sex: Female
  Weight: 59 kg

DRUGS (7)
  1. PROLIA [Suspect]
     Indication: OSTEOPOROSIS POSTMENOPAUSAL
     Dosage: UNK
     Dates: start: 20110326, end: 20110327
  2. VOLTAREN [Concomitant]
     Dosage: UNK
  3. NORIPAM [Concomitant]
     Dosage: UNK
  4. D3 [Concomitant]
     Dosage: UNK
  5. DISOPHROL [Concomitant]
     Dosage: UNK
  6. PIRABENE [Concomitant]
     Dosage: UNK, UNK
  7. ALLOPURINOL [Concomitant]
     Dosage: UNK, UNK

REACTIONS (7)
  - MUSCLE RIGIDITY [None]
  - ANXIETY [None]
  - SENSATION OF PRESSURE [None]
  - VOMITING [None]
  - HEADACHE [None]
  - NERVOUSNESS [None]
  - MUSCLE SPASMS [None]
